FAERS Safety Report 25447519 (Version 1)
Quarter: 2025Q2

REPORT INFORMATION
  Report Type: Spontaneous
  Country: BE (occurrence: BE)
  Receive Date: 20250617
  Receipt Date: 20250617
  Transmission Date: 20250717
  Serious: Yes (Other)
  Sender: MYLAN
  Company Number: None

PATIENT
  Age: 49 Year
  Sex: Female
  Weight: 80 kg

DRUGS (16)
  1. VENLAFAXINE HYDROCHLORIDE [Suspect]
     Active Substance: VENLAFAXINE HYDROCHLORIDE
     Indication: Depressive symptom
     Dosage: UNK UNK, QD (CHANGE FROM 75 TO 75+37.5, TAKEN IN THE MORNING)
  2. VENLAFAXINE HYDROCHLORIDE [Suspect]
     Active Substance: VENLAFAXINE HYDROCHLORIDE
     Dosage: UNK UNK, QD (CHANGE FROM 75 TO 75+37.5, TAKEN IN THE MORNING)
  3. VENLAFAXINE HYDROCHLORIDE [Suspect]
     Active Substance: VENLAFAXINE HYDROCHLORIDE
     Dosage: UNK UNK, QD (CHANGE FROM 75 TO 75+37.5, TAKEN IN THE MORNING)
     Route: 048
  4. VENLAFAXINE HYDROCHLORIDE [Suspect]
     Active Substance: VENLAFAXINE HYDROCHLORIDE
     Dosage: UNK UNK, QD (CHANGE FROM 75 TO 75+37.5, TAKEN IN THE MORNING)
     Route: 048
  5. VENLAFAXINE HYDROCHLORIDE [Suspect]
     Active Substance: VENLAFAXINE HYDROCHLORIDE
     Dosage: UNK UNK, QD (CHANGE FROM 75 TO 75+37.5, TAKEN IN THE MORNING)
     Dates: start: 20250516, end: 20250521
  6. VENLAFAXINE HYDROCHLORIDE [Suspect]
     Active Substance: VENLAFAXINE HYDROCHLORIDE
     Dosage: UNK UNK, QD (CHANGE FROM 75 TO 75+37.5, TAKEN IN THE MORNING)
     Dates: start: 20250516, end: 20250521
  7. VENLAFAXINE HYDROCHLORIDE [Suspect]
     Active Substance: VENLAFAXINE HYDROCHLORIDE
     Dosage: UNK UNK, QD (CHANGE FROM 75 TO 75+37.5, TAKEN IN THE MORNING)
     Route: 048
     Dates: start: 20250516, end: 20250521
  8. VENLAFAXINE HYDROCHLORIDE [Suspect]
     Active Substance: VENLAFAXINE HYDROCHLORIDE
     Dosage: UNK UNK, QD (CHANGE FROM 75 TO 75+37.5, TAKEN IN THE MORNING)
     Route: 048
     Dates: start: 20250516, end: 20250521
  9. Rupatall [Concomitant]
  10. Rupatall [Concomitant]
     Route: 065
  11. Rupatall [Concomitant]
     Route: 065
  12. Rupatall [Concomitant]
  13. BECLOMETHASONE DIPROPIONATE\FORMOTEROL FUMARATE [Concomitant]
     Active Substance: BECLOMETHASONE DIPROPIONATE\FORMOTEROL FUMARATE
  14. BECLOMETHASONE DIPROPIONATE\FORMOTEROL FUMARATE [Concomitant]
     Active Substance: BECLOMETHASONE DIPROPIONATE\FORMOTEROL FUMARATE
     Route: 065
  15. BECLOMETHASONE DIPROPIONATE\FORMOTEROL FUMARATE [Concomitant]
     Active Substance: BECLOMETHASONE DIPROPIONATE\FORMOTEROL FUMARATE
     Route: 065
  16. BECLOMETHASONE DIPROPIONATE\FORMOTEROL FUMARATE [Concomitant]
     Active Substance: BECLOMETHASONE DIPROPIONATE\FORMOTEROL FUMARATE

REACTIONS (3)
  - Negative thoughts [Recovering/Resolving]
  - Suicidal ideation [Recovering/Resolving]
  - Condition aggravated [Recovering/Resolving]
